FAERS Safety Report 25745513 (Version 1)
Quarter: 2025Q3

REPORT INFORMATION
  Report Type: Spontaneous
  Country: AU (occurrence: AU)
  Receive Date: 20250901
  Receipt Date: 20250901
  Transmission Date: 20251020
  Serious: Yes (Life-Threatening, Hospitalization, Other)
  Sender: MANKIND PHARMA
  Company Number: AU-MankindUS-000467

PATIENT
  Age: 24 Year
  Sex: Male

DRUGS (3)
  1. BACLOFEN [Suspect]
     Active Substance: BACLOFEN
     Indication: Alcohol use disorder
  2. ESCITALOPRAM [Suspect]
     Active Substance: ESCITALOPRAM OXALATE
     Indication: Alcohol use disorder
  3. BACLOFEN [Suspect]
     Active Substance: BACLOFEN
     Indication: Alcohol use disorder

REACTIONS (6)
  - Bradyarrhythmia [Recovered/Resolved]
  - Withdrawal syndrome [Unknown]
  - Toxicity to various agents [Unknown]
  - Intentional overdose [Unknown]
  - Hypotension [Recovered/Resolved]
  - Cardiac arrest [Recovered/Resolved]
